FAERS Safety Report 7275940 (Version 2)
Quarter: 2012Q4

REPORT INFORMATION
  Report Type: Report from Study
  Country: US (occurrence: US)
  Receive Date: 20100211
  Receipt Date: 20121207
  Transmission Date: 20130627
  Serious: Yes (Hospitalization)
  Sender: FDA-Public Use
  Company Number: US-ROCHE-684001

PATIENT
  Age: 61 Year
  Sex: Female
  Weight: 69 kg

DRUGS (9)
  1. CAPECITABINE [Suspect]
     Indication: BREAST CANCER
     Dosage: DOSE: 500 MG BID+150 MG BID
     Route: 048
     Dates: start: 20100105, end: 20100113
  2. LOTREL [Concomitant]
     Dosage: DOSE: 10-20 MG
     Route: 048
  3. REGLAN [Concomitant]
     Route: 048
  4. PENCID [Concomitant]
     Route: 048
  5. VENLAFAXINE [Concomitant]
     Route: 048
  6. LEVOTHYROXINE [Concomitant]
     Route: 048
  7. DETROL LA [Concomitant]
     Route: 048
  8. TRAMADOL [Concomitant]
     Route: 048
  9. MIRALAX [Concomitant]
     Route: 048

REACTIONS (1)
  - Mucosal inflammation [Recovering/Resolving]
